FAERS Safety Report 7749185-X (Version None)
Quarter: 2011Q3

REPORT INFORMATION
  Report Type: 
  Country: None (occurrence: None)
  Receive Date: 20110909
  Receipt Date: 20110825
  Transmission Date: 20111222
  Serious: Yes (Other)
  Sender: FDA-Public Use
  Company Number: GER/GER/11/0020821

PATIENT
  Age: 19 Year
  Sex: Female
  Weight: 70 kg

DRUGS (3)
  1. CITALOPRAM HYDROBROMIDE [Suspect]
     Indication: DEPRESSION
     Dosage: 30 MG, ORAL, 20 MG, ORAL
     Route: 048
     Dates: start: 20100101, end: 20100821
  2. CITALOPRAM HYDROBROMIDE [Suspect]
     Indication: DEPRESSION
     Dosage: 30 MG, ORAL, 20 MG, ORAL
     Route: 048
     Dates: start: 20100101, end: 20100821
  3. FOLSAURE [Concomitant]

REACTIONS (4)
  - MATERNAL EXPOSURE DURING PREGNANCY [None]
  - SPINA BIFIDA [None]
  - ABORTION INDUCED [None]
  - HYDROCEPHALUS [None]
